FAERS Safety Report 14175666 (Version 1)
Quarter: 2017Q4

REPORT INFORMATION
  Report Type: Spontaneous
  Country: US (occurrence: US)
  Receive Date: 20171109
  Receipt Date: 20171109
  Transmission Date: 20180321
  Serious: No
  Sender: FDA-Public Use
  Company Number: US-ALLERGAN-1729908US

PATIENT
  Age: 79 Year
  Sex: Female

DRUGS (2)
  1. COMBIGAN [Suspect]
     Active Substance: BRIMONIDINE TARTRATE\TIMOLOL MALEATE
     Indication: CATARACT
     Dosage: 2 UNK, UNK
     Route: 047
     Dates: start: 20170711
  2. LUMIGAN [Suspect]
     Active Substance: BIMATOPROST
     Indication: CATARACT
     Dosage: 1 GTT, SINGLE
     Route: 047
     Dates: start: 20170711

REACTIONS (3)
  - Off label use [Unknown]
  - Disorientation [Not Recovered/Not Resolved]
  - Fatigue [Not Recovered/Not Resolved]

NARRATIVE: CASE EVENT DATE: 20170711
